FAERS Safety Report 22175904 (Version 1)
Quarter: 2023Q2

REPORT INFORMATION
  Report Type: Spontaneous
  Country: GB (occurrence: GB)
  Receive Date: 20230405
  Receipt Date: 20230405
  Transmission Date: 20230721
  Serious: Yes (Other)
  Sender: FDA-Public Use
  Company Number: None

PATIENT
  Age: 67 Year
  Sex: Male
  Weight: 124 kg

DRUGS (5)
  1. METHENAMINE [Suspect]
     Active Substance: METHENAMINE
     Indication: Ill-defined disorder
     Dosage: TAKE ONE TWICE DAILY
     Dates: start: 20220616
  2. METHENAMINE [Suspect]
     Active Substance: METHENAMINE
     Dates: start: 20220628
  3. ALLOPURINOL [Concomitant]
     Active Substance: ALLOPURINOL
     Indication: Gout
     Dates: start: 20210625
  4. DOXAZOSIN [Concomitant]
     Active Substance: DOXAZOSIN MESYLATE
     Indication: Ill-defined disorder
     Dosage: TAKE ONE DAILY
     Dates: start: 20210625
  5. PIROXICAM. [Concomitant]
     Indication: Ill-defined disorder
     Dosage: APPLY TWO OR THREE TIMES DAILY
     Dates: start: 20210625

REACTIONS (2)
  - Burning sensation [Recovered/Resolved]
  - Blood uric acid increased [Unknown]

NARRATIVE: CASE EVENT DATE: 20220628
